FAERS Safety Report 8585037-3 (Version None)
Quarter: 2012Q3

REPORT INFORMATION
  Report Type: 
  Country: None (occurrence: None)
  Receive Date: 20120810
  Receipt Date: 20120802
  Transmission Date: 20120928
  Serious: Yes (Hospitalization, Other)
  Sender: FDA-Public Use
  Company Number: US-US-EMD SERONO, INC.-7152408

PATIENT
  Sex: Male

DRUGS (1)
  1. REBIF [Suspect]
     Indication: MULTIPLE SCLEROSIS
     Route: 058
     Dates: start: 20090720

REACTIONS (8)
  - ROTATOR CUFF SYNDROME [None]
  - EYE DISORDER [None]
  - PARAESTHESIA [None]
  - INJECTION SITE HAEMATOMA [None]
  - POST PROCEDURAL INFECTION [None]
  - INJECTION SITE HAEMORRHAGE [None]
  - EXOSTOSIS [None]
  - FATIGUE [None]
